FAERS Safety Report 8257186-0 (Version None)
Quarter: 2012Q2

REPORT INFORMATION
  Report Type: 
  Country: None (occurrence: None)
  Receive Date: 20120403
  Receipt Date: 20120328
  Transmission Date: 20120825
  Serious: Yes (Life-Threatening, Hospitalization)
  Sender: FDA-Public Use
  Company Number: US-CELGENEUS-163-50794-12033465

PATIENT
  Age: 63 Year
  Sex: Male

DRUGS (11)
  1. GEMFIBROZIL [Concomitant]
     Route: 048
  2. HUMULIN R [Concomitant]
     Indication: DIABETES MELLITUS
     Route: 058
  3. VIDAZA [Suspect]
     Dosage: 100 MILLIGRAM
     Route: 041
     Dates: start: 20111229
  4. VIDAZA [Suspect]
     Dosage: 100 MILLIGRAM
     Route: 041
     Dates: start: 20120214, end: 20120217
  5. GLIPIZIDE [Concomitant]
     Indication: DIABETES MELLITUS
     Route: 048
  6. FUROSEMIDE [Concomitant]
     Route: 048
  7. ISOSORBIDE DINITRATE [Concomitant]
     Route: 048
  8. VIDAZA [Suspect]
     Indication: MYELODYSPLASTIC SYNDROME
     Dosage: 140 MILLIGRAM
     Route: 041
     Dates: start: 20111001
  9. ZOCOR [Concomitant]
     Route: 048
  10. SPIRONOLACTONE [Concomitant]
     Route: 048
  11. ASPIRIN [Concomitant]
     Indication: THROMBOSIS PROPHYLAXIS
     Dosage: 81 MILLIGRAM
     Route: 048

REACTIONS (2)
  - NECROTISING FASCIITIS [None]
  - TENDONITIS [None]
